FAERS Safety Report 8350390-2 (Version None)
Quarter: 2012Q2

REPORT INFORMATION
  Report Type: 
  Country: None (occurrence: None)
  Receive Date: 20120510
  Receipt Date: 20120502
  Transmission Date: 20120825
  Serious: Yes (Hospitalization)
  Sender: FDA-Public Use
  Company Number: US-BAYER-2011-009457

PATIENT
  Age: 24 Year
  Sex: Female
  Weight: 102.4 kg

DRUGS (6)
  1. YAZ [Suspect]
     Indication: CONTRACEPTION
     Dosage: UNK
     Dates: start: 20080901, end: 20090101
  2. YAZ [Suspect]
     Indication: ACNE
  3. NORCO [Concomitant]
     Indication: PAIN
     Dosage: 325 MG, PRN
     Route: 048
  4. YAZ [Suspect]
     Indication: PREMENSTRUAL SYNDROME
  5. FLEXERIL [Concomitant]
     Dosage: 10 MG, PRN
     Route: 048
  6. LORTAB [Concomitant]
     Indication: PAIN
     Dosage: 500 MG, PRN
     Route: 048

REACTIONS (9)
  - CHOLELITHIASIS [None]
  - GALLBLADDER DISORDER [None]
  - DYSPEPSIA [None]
  - PSYCHOLOGICAL TRAUMA [None]
  - PAIN [None]
  - ANXIETY [None]
  - EMOTIONAL DISTRESS [None]
  - FEAR [None]
  - ABDOMINAL PAIN [None]
